FAERS Safety Report 20662969 (Version 2)
Quarter: 2022Q2

REPORT INFORMATION
  Report Type: Other
  Country: US (occurrence: None)
  Receive Date: 20220401
  Receipt Date: 20220413
  Transmission Date: 20220721
  Serious: No
  Sender: FDA-Public Use
  Company Number: US-ROCHE-2367449

PATIENT
  Sex: Female
  Weight: 99.880 kg

DRUGS (7)
  1. OCREVUS [Suspect]
     Active Substance: OCRELIZUMAB
     Indication: Primary progressive multiple sclerosis
     Dosage: YES 300 MG ON DAY 1 AND DAY 15 AND 600MG IVPB EVERY 6 MONTHS
     Route: 042
     Dates: start: 20170101
  2. OCREVUS [Suspect]
     Active Substance: OCRELIZUMAB
     Indication: Multiple sclerosis
  3. DULOXETINE [Concomitant]
     Active Substance: DULOXETINE
     Indication: Myalgia
     Route: 048
  4. DULOXETINE [Concomitant]
     Active Substance: DULOXETINE
     Dosage: FRIDAYS: ONE 30 MG TAB AT NIGHT
     Route: 048
  5. DULOXETINE [Concomitant]
     Active Substance: DULOXETINE
     Dosage: SATURDAYS: ONE 30 MG TAB IN THE MORNING AND ONE 30 MG TAB AT NIGHT
     Route: 048
  6. BACLOFEN [Concomitant]
     Active Substance: BACLOFEN
     Indication: Myalgia
     Dosage: FRIDAYS: ONE 20 MG TAB AT NIGHT
     Route: 048
  7. BACLOFEN [Concomitant]
     Active Substance: BACLOFEN
     Dosage: SATURDAYS: 20 MG TAB ONCE IN THE MORNING AND ONCE A NIGHT
     Route: 048

REACTIONS (6)
  - Alopecia [Not Recovered/Not Resolved]
  - Pain [Not Recovered/Not Resolved]
  - Oropharyngeal pain [Recovering/Resolving]
  - Lower respiratory tract infection [Recovering/Resolving]
  - Weight decreased [Unknown]
  - Herpes simplex [Not Recovered/Not Resolved]

NARRATIVE: CASE EVENT DATE: 20170101
